FAERS Safety Report 9844576 (Version 1)
Quarter: 2014Q1

REPORT INFORMATION
  Report Type: Spontaneous
  Country: US (occurrence: None)
  Receive Date: 20140123
  Receipt Date: 20140123
  Transmission Date: 20141002
  Serious: Yes (Other)
  Sender: FDA-Public Use
  Company Number: 2014AP000278

PATIENT
  Age: 44 Year
  Sex: Male

DRUGS (17)
  1. DOXAZOSIN MESYLATE [Suspect]
  2. QUETIAPINE FUMARATE [Suspect]
     Indication: AFFECTIVE DISORDER
  3. ATRIPLA [Concomitant]
  4. PEGINTERFERON ALFA-2B [Concomitant]
  5. RIBAVIRIN [Concomitant]
  6. ONDANSETRON [Concomitant]
  7. ESOMEPRAZOLE [Concomitant]
  8. LITHIUM [Concomitant]
  9. LOSARTAN [Concomitant]
  10. NAPROXEN [Concomitant]
  11. ACETAMINOPHEN W/OXYCODONE [Concomitant]
  12. LOPERAMIDE [Concomitant]
  13. CODEINE W/GUAIFENESIN /00693301/ [Concomitant]
  14. CYCLOBENZAPRINE [Concomitant]
  15. BOCEPREVIR [Suspect]
     Indication: HEPATITIS C
  16. TAMSULOSIN [Suspect]
  17. TESTOSTERONE CIPIONATE [Suspect]
     Indication: HYPOGONADISM
     Route: 030

REACTIONS (4)
  - Nausea [None]
  - Vomiting [None]
  - Priapism [None]
  - Drug interaction [None]
